FAERS Safety Report 15720783 (Version 4)
Quarter: 2019Q1

REPORT INFORMATION
  Report Type: Report from Study
  Country: None (occurrence: US)
  Receive Date: 20181213
  Receipt Date: 20190201
  Transmission Date: 20190417
  Serious: No
  Sender: FDA-Public Use
  Company Number: US-ABBVIE-18S-163-2588287-00

PATIENT
  Age: 73 Year
  Sex: Female
  Weight: 66.74 kg

DRUGS (1)
  1. CREON [Suspect]
     Active Substance: PANCRELIPASE AMYLASE\PANCRELIPASE LIPASE\PANCRELIPASE PROTEASE
     Indication: PANCREATIC FAILURE
     Dosage: 2 CAPSULES WITH MEALS AND 1 CAPSULE WITH SNACKS
     Route: 048
     Dates: start: 20181016, end: 20181212

REACTIONS (3)
  - Abdominal discomfort [Recovered/Resolved]
  - Nervousness [Recovered/Resolved]
  - Food poisoning [Recovered/Resolved]

NARRATIVE: CASE EVENT DATE: 20181212
